FAERS Safety Report 5286408-3 (Version None)
Quarter: 2007Q2

REPORT INFORMATION
  Report Type: 
  Country: None (occurrence: None)
  Receive Date: 20070404
  Receipt Date: 20070326
  Transmission Date: 20071010
  Serious: Yes (Other)
  Sender: FDA-Public Use
  Company Number: BH-AMGEN-UK216742

PATIENT
  Sex: Female
  Weight: 74 kg

DRUGS (7)
  1. NEUPOGEN [Suspect]
     Indication: CHEMOTHERAPY
     Route: 058
  2. ETOPOSIDE [Concomitant]
  3. DACTINOMYCIN [Concomitant]
  4. METHOTREXATE [Concomitant]
  5. LEUCOVORIN CALCIUM [Concomitant]
  6. ONCOVIN [Concomitant]
  7. ENDOXAN [Concomitant]

REACTIONS (7)
  - BACK PAIN [None]
  - CHEST DISCOMFORT [None]
  - DYSPNOEA [None]
  - FEELING HOT [None]
  - LIMB DISCOMFORT [None]
  - PAIN [None]
  - PYREXIA [None]
